FAERS Safety Report 13749171 (Version 3)
Quarter: 2017Q3

REPORT INFORMATION
  Report Type: Spontaneous
  Country: US (occurrence: US)
  Receive Date: 20170713
  Receipt Date: 20170919
  Transmission Date: 20171127
  Serious: No
  Sender: FDA-Public Use
  Company Number: US-PFIZER INC-2017305424

PATIENT
  Age: 50 Year
  Sex: Male
  Weight: 129.2 kg

DRUGS (9)
  1. LISINOPRIL. [Concomitant]
     Active Substance: LISINOPRIL
     Dosage: UNK
     Dates: start: 201501
  2. NEURONTIN [Suspect]
     Active Substance: GABAPENTIN
     Dosage: 10 MG, UP TO 15 PILLS A DAY
  3. METFORMIN [Concomitant]
     Active Substance: METFORMIN HYDROCHLORIDE
     Dosage: UNK
     Dates: start: 201201
  4. TAMSULOSIN [Concomitant]
     Active Substance: TAMSULOSIN
     Dosage: UNK
     Dates: start: 201601
  5. WARFARIN [Concomitant]
     Active Substance: WARFARIN
     Dosage: UNK
     Dates: start: 201301
  6. PANTOPRAZOLE [Concomitant]
     Active Substance: PANTOPRAZOLE
     Dosage: UNK
     Dates: start: 201701
  7. BEPREVE [Concomitant]
     Active Substance: BEPOTASTINE BESILATE
     Dosage: 5 ML, UNK
     Dates: start: 201701
  8. HYDROCORT /00028602/ [Concomitant]
     Dosage: UNK
     Dates: start: 201501
  9. NEURONTIN [Suspect]
     Active Substance: GABAPENTIN
     Indication: PAIN IN EXTREMITY
     Dosage: 40 MG, 3X/DAY
     Dates: start: 200701, end: 201701

REACTIONS (1)
  - Drug ineffective for unapproved indication [Recovered/Resolved]

NARRATIVE: CASE EVENT DATE: 200701
